FAERS Safety Report 18158095 (Version 2)
Quarter: 2020Q4

REPORT INFORMATION
  Report Type: Report from Study
  Country: DO (occurrence: DO)
  Receive Date: 20200817
  Receipt Date: 20201121
  Transmission Date: 20210113
  Serious: No
  Sender: FDA-Public Use
  Company Number: NVSC2020DO199624

PATIENT
  Sex: Female

DRUGS (2)
  1. KISQALI [Suspect]
     Active Substance: RIBOCICLIB
     Indication: BREAST CANCER
     Dosage: 600 MG, QD  (7 TO 8 IN THE MORNING)
     Route: 048
     Dates: start: 202002
  2. FEMARA [Suspect]
     Active Substance: LETROZOLE
     Indication: BREAST CANCER
     Dosage: UNK
     Route: 065

REACTIONS (11)
  - Platelet count decreased [Unknown]
  - Abdominal pain upper [Unknown]
  - Blood creatinine increased [Recovered/Resolved]
  - Movement disorder [Unknown]
  - Pain in extremity [Unknown]
  - Malaise [Unknown]
  - Pain [Unknown]
  - Constipation [Unknown]
  - Fatigue [Unknown]
  - Dizziness [Unknown]
  - Asthenia [Unknown]
